FAERS Safety Report 13905279 (Version 2)
Quarter: 2017Q3

REPORT INFORMATION
  Report Type: Report from Study
  Country: GB (occurrence: GB)
  Receive Date: 20170825
  Receipt Date: 20170929
  Transmission Date: 20171127
  Serious: Yes (Other)
  Sender: FDA-Public Use
  Company Number: GB-JNJFOC-20170820688

PATIENT
  Sex: Female

DRUGS (1)
  1. STELARA [Suspect]
     Active Substance: USTEKINUMAB
     Indication: PSORIASIS
     Dosage: ON WEEK 4
     Route: 058

REACTIONS (4)
  - Drug dose omission [Unknown]
  - Lower respiratory tract infection [Not Recovered/Not Resolved]
  - Pericardial effusion [Unknown]
  - Product storage error [Unknown]

NARRATIVE: CASE EVENT DATE: 2017
